FAERS Safety Report 18012799 (Version 2)
Quarter: 2020Q3

REPORT INFORMATION
  Report Type: Spontaneous
  Country: JP (occurrence: JP)
  Receive Date: 20200713
  Receipt Date: 20200909
  Transmission Date: 20201103
  Serious: Yes (Other)
  Sender: FDA-Public Use
  Company Number: JP-VIIV HEALTHCARE LIMITED-JP2020JPN122164

PATIENT
  Sex: Male

DRUGS (2)
  1. ABACAVIRSULPHATE+DOLUTEGRAVIR+LAMIVUDINE [Suspect]
     Active Substance: ABACAVIR SULFATE\DOLUTEGRAVIR SODIUM\LAMIVUDINE
     Indication: HIV INFECTION
     Dosage: 1 DF, QD
     Route: 048
  2. ABACAVIRSULPHATE+DOLUTEGRAVIR+LAMIVUDINE [Suspect]
     Active Substance: ABACAVIR SULFATE\DOLUTEGRAVIR SODIUM\LAMIVUDINE
     Indication: ACQUIRED IMMUNODEFICIENCY SYNDROME

REACTIONS (3)
  - Blood HIV RNA increased [Recovered/Resolved]
  - Drug level decreased [Unknown]
  - Food interaction [Unknown]
